FAERS Safety Report 6705029-6 (Version None)
Quarter: 2010Q2

REPORT INFORMATION
  Report Type: 
  Country: None (occurrence: None)
  Receive Date: 20100430
  Receipt Date: 20100423
  Transmission Date: 20101027
  Serious: Yes (Disabling)
  Sender: FDA-Public Use
  Company Number: B0640547A

PATIENT
  Age: 61 Year
  Sex: Male
  Weight: 68 kg

DRUGS (2)
  1. DEROXAT [Suspect]
     Indication: DRUG USE FOR UNKNOWN INDICATION
     Route: 048
  2. LEXOMIL [Concomitant]
     Dosage: 3MG PER DAY
     Route: 048

REACTIONS (4)
  - DIZZINESS [None]
  - MALAISE [None]
  - TINNITUS [None]
  - WITHDRAWAL SYNDROME [None]
